FAERS Safety Report 7491286-8 (Version None)
Quarter: 2011Q2

REPORT INFORMATION
  Report Type: 
  Country: None (occurrence: None)
  Receive Date: 20110519
  Receipt Date: 20110512
  Transmission Date: 20111010
  Serious: Yes (Life-Threatening, Hospitalization, Disabling)
  Sender: FDA-Public Use
  Company Number: B0696200A

PATIENT
  Sex: Male
  Weight: 16.8 kg

DRUGS (53)
  1. FAMOTIDINE [Concomitant]
     Dosage: 10MG PER DAY
     Dates: start: 20080519, end: 20080601
  2. TARGOCID [Concomitant]
     Dosage: 240MG PER DAY
     Route: 042
     Dates: start: 20080528, end: 20080531
  3. CEFTAZIDIME [Concomitant]
     Dosage: .5G PER DAY
     Route: 042
     Dates: start: 20080531, end: 20080603
  4. PIRARUBICIN [Suspect]
     Route: 065
  5. URSO 250 [Concomitant]
     Dosage: 45MG PER DAY
     Route: 048
     Dates: start: 20080523, end: 20080616
  6. BACTRIM [Concomitant]
     Dosage: .7G PER DAY
     Route: 048
     Dates: start: 20080603, end: 20080627
  7. DIFLUCAN [Concomitant]
     Dosage: 50MG PER DAY
     Route: 048
     Dates: start: 20080612, end: 20080614
  8. SODIUM BICARBONATE [Concomitant]
     Dosage: 1G PER DAY
     Route: 048
     Dates: start: 20080620
  9. ATARAX [Concomitant]
     Dosage: 14MG PER DAY
     Route: 042
     Dates: start: 20080513, end: 20080526
  10. FUROSEMIDE [Concomitant]
     Dosage: 5MG PER DAY
     Route: 042
     Dates: start: 20080522, end: 20080524
  11. MILRINONE [Concomitant]
     Dosage: 2MG PER DAY
     Route: 042
     Dates: start: 20080529, end: 20080716
  12. DECADRON [Concomitant]
     Dosage: 33MG PER DAY
     Dates: start: 20080522, end: 20080522
  13. PAZUCROSS [Concomitant]
     Dosage: 70ML PER DAY
     Route: 042
     Dates: start: 20080530, end: 20080610
  14. PREDNISOLONE [Concomitant]
     Dosage: 30MG PER DAY
     Dates: start: 20080602, end: 20080816
  15. GRAN [Concomitant]
     Dates: start: 20080528, end: 20080602
  16. MAXIPIME [Concomitant]
     Dosage: .5G PER DAY
     Route: 042
     Dates: start: 20080518, end: 20080609
  17. FUNGUARD [Concomitant]
     Dosage: 50MG PER DAY
     Route: 042
     Dates: start: 20080520, end: 20080710
  18. MEROPENEM [Concomitant]
     Dosage: 400MG PER DAY
     Dates: start: 20080526, end: 20080531
  19. ALBUMIN (HUMAN) [Concomitant]
     Dosage: 50ML PER DAY
     Route: 042
     Dates: start: 20080813, end: 20080813
  20. ETOPOSIDE [Suspect]
     Indication: STEM CELL TRANSPLANT
     Dosage: 130MG PER DAY
     Route: 042
     Dates: start: 20080516, end: 20080519
  21. ITRIZOLE [Concomitant]
     Dosage: 6ML PER DAY
     Route: 048
     Dates: start: 20080519, end: 20080529
  22. CARVEDILOL [Concomitant]
     Dosage: 1.4MG PER DAY
     Route: 048
     Dates: start: 20080617
  23. MAGMITT [Concomitant]
     Dosage: 250MG PER DAY
     Route: 048
     Dates: start: 20080711
  24. SAWACILLIN [Concomitant]
     Dosage: 100MG PER DAY
     Route: 048
     Dates: start: 20080724, end: 20080726
  25. MORPHINE HCL ELIXIR [Concomitant]
     Dosage: 10MG PER DAY
     Dates: start: 20080521, end: 20080602
  26. OMEPRAZOLE [Concomitant]
     Dosage: 5MG PER DAY
     Route: 042
     Dates: start: 20080801, end: 20080806
  27. ALKERAN [Suspect]
     Indication: STEM CELL TRANSPLANT
     Dosage: 57MG PER DAY
     Route: 042
     Dates: start: 20080520, end: 20080521
  28. PRIMPERAN TAB [Concomitant]
     Dosage: 1.2MG PER DAY
     Dates: start: 20080607, end: 20080623
  29. LANSOPRAZOLE [Concomitant]
     Dosage: .25IUAX PER DAY
     Route: 048
     Dates: start: 20080807
  30. VITAMEDIN [Concomitant]
     Dosage: 1IUAX PER DAY
     Route: 042
     Dates: start: 20080520, end: 20080529
  31. ACYCRIL [Concomitant]
     Dosage: 140MG PER DAY
     Route: 042
     Dates: start: 20080522, end: 20080603
  32. ASPIRIN [Concomitant]
     Dosage: 420MG PER DAY
     Route: 048
     Dates: start: 20080605, end: 20080804
  33. MINOCYCLINE HCL [Concomitant]
     Dosage: 60MG PER DAY
     Route: 042
     Dates: start: 20080607, end: 20080611
  34. ALLOID G [Concomitant]
     Dosage: 30ML PER DAY
     Route: 048
     Dates: start: 20080605, end: 20080618
  35. ZOFRAN [Concomitant]
     Dosage: 1.6MG PER DAY
     Route: 042
     Dates: start: 20080516, end: 20080526
  36. SOLU-CORTEF [Concomitant]
     Dosage: 70MG PER DAY
     Dates: start: 20080523, end: 20080528
  37. VICCILLIN [Concomitant]
     Dosage: 500MG PER DAY
     Route: 030
     Dates: start: 20080725, end: 20080730
  38. ALBUMIN (HUMAN) [Concomitant]
     Dosage: 50ML PER DAY
     Route: 042
     Dates: start: 20080524, end: 20080526
  39. CONCLYTE-MG [Concomitant]
     Dosage: 32ML PER DAY
     Dates: start: 20080528, end: 20080601
  40. OMEPRAZOLE [Concomitant]
     Dosage: 10MG PER DAY
     Route: 042
     Dates: start: 20080601, end: 20080624
  41. IMMUNE GLOBULIN INTRAVENOUS (HUMAN) [Concomitant]
     Dosage: 5G PER DAY
     Route: 042
     Dates: start: 20080616, end: 20080616
  42. EPOGIN [Concomitant]
     Dates: start: 20080709, end: 20080709
  43. ACIROVEC [Concomitant]
     Dosage: 180MG PER DAY
     Route: 048
     Dates: start: 20080519, end: 20080627
  44. PRECIPITATED CALCIUM CARBONATE [Concomitant]
     Dosage: 1.5G PER DAY
     Route: 048
     Dates: start: 20080627
  45. FAMOTIDINE [Concomitant]
     Dosage: 1.6MG PER DAY
     Dates: start: 20080728, end: 20080801
  46. HISHIPHAGEN C [Concomitant]
     Dosage: 20ML PER DAY
     Route: 042
     Dates: start: 20080518, end: 20080531
  47. DOPAMINE HYDROCHLORIDE [Concomitant]
     Dosage: 100MG PER DAY
     Route: 042
     Dates: start: 20080525, end: 20080527
  48. DECADRON [Concomitant]
     Dosage: 7MG PER DAY
     Dates: start: 20080604, end: 20080604
  49. CARBOPLATIN [Suspect]
     Indication: STEM CELL TRANSPLANT
     Dosage: 250MG PER DAY
     Route: 042
     Dates: start: 20080516, end: 20080519
  50. EPOGIN [Concomitant]
     Dates: start: 20080625, end: 20080625
  51. CALCICOL [Concomitant]
     Dosage: 20ML PER DAY
     Route: 042
     Dates: start: 20080524, end: 20080526
  52. KIDMIN [Concomitant]
     Dosage: 200ML PER DAY
     Dates: start: 20080529, end: 20080712
  53. ANTHROBIN P [Concomitant]
     Dosage: 500IU PER DAY
     Route: 042
     Dates: start: 20080602, end: 20080602

REACTIONS (2)
  - CONGESTIVE CARDIOMYOPATHY [None]
  - RENAL FAILURE [None]
